FAERS Safety Report 8319445-2 (Version None)
Quarter: 2012Q2

REPORT INFORMATION
  Report Type: 
  Country: None (occurrence: None)
  Receive Date: 20120426
  Receipt Date: 20120426
  Transmission Date: 20120825
  Serious: Yes (Hospitalization)
  Sender: FDA-Public Use
  Company Number: None

PATIENT
  Age: 69 Year
  Sex: Female

DRUGS (19)
  1. PHOSLO CA ACETATE [Concomitant]
  2. NEBIVOLOL [Concomitant]
  3. HECTOROL [Suspect]
     Dosage: 2.0 MCG 3X QW 1.5 MCG 3X QW 2/9/12 1.0 MCG 3X QW 1.5 MCG 3X QW 2.5 MCG 3X QW 2.0 MCG 3X QW
     Dates: start: 20120309
  4. HECTOROL [Suspect]
     Dosage: 2.0 MCG 3X QW 1.5 MCG 3X QW 2/9/12 1.0 MCG 3X QW 1.5 MCG 3X QW 2.5 MCG 3X QW 2.0 MCG 3X QW
     Dates: start: 20120209, end: 20120309
  5. HECTOROL [Suspect]
     Dosage: 2.0 MCG 3X QW 1.5 MCG 3X QW 2/9/12 1.0 MCG 3X QW 1.5 MCG 3X QW 2.5 MCG 3X QW 2.0 MCG 3X QW
     Dates: start: 20110805, end: 20111006
  6. HECTOROL [Suspect]
     Dosage: 2.0 MCG 3X QW 1.5 MCG 3X QW 2/9/12 1.0 MCG 3X QW 1.5 MCG 3X QW 2.5 MCG 3X QW 2.0 MCG 3X QW
     Dates: start: 20111111, end: 20120208
  7. HECTOROL [Suspect]
     Dosage: 2.0 MCG 3X QW 1.5 MCG 3X QW 2/9/12 1.0 MCG 3X QW 1.5 MCG 3X QW 2.5 MCG 3X QW 2.0 MCG 3X QW
     Dates: start: 20110520, end: 20110804
  8. HECTOROL [Suspect]
     Dosage: 2.0 MCG 3X QW 1.5 MCG 3X QW 2/9/12 1.0 MCG 3X QW 1.5 MCG 3X QW 2.5 MCG 3X QW 2.0 MCG 3X QW
     Dates: start: 20110325, end: 20110519
  9. ASPIRIN [Concomitant]
  10. PHENERGAN [Concomitant]
  11. IMDUR [Concomitant]
  12. MINOXIDIL [Concomitant]
  13. VENOFER [Concomitant]
  14. SYNTHROID [Concomitant]
  15. RENA-VITE [Concomitant]
  16. EPOGEN [Concomitant]
  17. RENVELA [Concomitant]
  18. CLONIDINE [Concomitant]
  19. AZOR [Concomitant]

REACTIONS (1)
  - PANCREATITIS ACUTE [None]
